FAERS Safety Report 5829009-8 (Version None)
Quarter: 2008Q3

REPORT INFORMATION
  Report Type: 
  Country: None (occurrence: None)
  Receive Date: 20080731
  Receipt Date: 20080729
  Transmission Date: 20090109
  Serious: Yes (Death, Hospitalization, Other)
  Sender: FDA-Public Use
  Company Number: PHBS2008GB05237

PATIENT
  Age: 19 Year
  Sex: Female

DRUGS (10)
  1. NEORAL [Suspect]
     Indication: LUNG TRANSPLANT
     Dosage: 4.5 MG/KG, DAY
     Route: 048
  2. AZATHIOPRINE [Suspect]
     Indication: LUNG TRANSPLANT
     Dosage: 6 MG/KG, DAY
     Route: 048
  3. PREDNISOLONE [Suspect]
     Indication: LUNG TRANSPLANT
  4. METHYLPREDNISOLONE [Concomitant]
     Dosage: 1 G, UNK
     Route: 042
  5. METHYLPREDNISOLONE [Concomitant]
     Dosage: UNK
     Route: 042
  6. GENTAMYCIN-MP [Concomitant]
     Indication: PROPHYLAXIS
     Route: 042
  7. CEFTAZIDIME [Concomitant]
     Indication: PROPHYLAXIS
     Route: 042
  8. TARGOCID [Concomitant]
     Indication: PROPHYLAXIS
     Route: 042
  9. SPORANOX [Concomitant]
  10. FUNGIZONE [Concomitant]
     Dosage: UNK

REACTIONS (20)
  - ABSCESS FUNGAL [None]
  - ACUTE PULMONARY OEDEMA [None]
  - ANOREXIA [None]
  - AORTIC VALVE INCOMPETENCE [None]
  - AORTIC VALVE REPLACEMENT [None]
  - ASPERGILLOSIS [None]
  - C-REACTIVE PROTEIN INCREASED [None]
  - CARDIAC ARREST [None]
  - CARDIAC MURMUR [None]
  - CARDIAC VALVE VEGETATION [None]
  - FORCED EXPIRATORY VOLUME DECREASED [None]
  - FUNGAL ENDOCARDITIS [None]
  - HYPOTENSION [None]
  - JOINT SWELLING [None]
  - MALAISE [None]
  - NAUSEA [None]
  - NIGHT SWEATS [None]
  - PLEURAL EFFUSION [None]
  - SEPSIS [None]
  - TRANSPLANT REJECTION [None]
